FAERS Safety Report 20991343 (Version 1)
Quarter: 2022Q2

REPORT INFORMATION
  Report Type: Spontaneous
  Country: DK (occurrence: DK)
  Receive Date: 20220622
  Receipt Date: 20220622
  Transmission Date: 20220720
  Serious: Yes (Death, Hospitalization)
  Sender: FDA-Public Use
  Company Number: None

PATIENT
  Age: 69 Year
  Sex: Male

DRUGS (2)
  1. ALTEPLASE [Suspect]
     Active Substance: ALTEPLASE
     Indication: Cerebral thrombosis
     Dosage: GIVEN AS A BOLUS.
     Route: 042
     Dates: start: 20190403
  2. HJERTEMAGNYL [Concomitant]
     Indication: Anticoagulant therapy
     Dosage: STRENGTH AND DOSAGE: UNKNOWN
     Route: 048

REACTIONS (18)
  - Cerebral haemorrhage [Fatal]
  - Dyspnoea [Fatal]
  - Altered state of consciousness [Fatal]
  - Seizure [Fatal]
  - Decerebration [Fatal]
  - Speech disorder [Fatal]
  - Vomiting [Fatal]
  - Facial paralysis [Fatal]
  - Hyperhidrosis [Fatal]
  - Malaise [Fatal]
  - Hemiplegia [Fatal]
  - Eye movement disorder [Fatal]
  - Blood pressure fluctuation [Fatal]
  - Miosis [Fatal]
  - Pupillary reflex impaired [Fatal]
  - Pneumonia aspiration [Fatal]
  - Unresponsive to stimuli [Fatal]
  - Brain death [Fatal]

NARRATIVE: CASE EVENT DATE: 20190403
